FAERS Safety Report 18686412 (Version 1)
Quarter: 2020Q4

REPORT INFORMATION
  Report Type: Spontaneous
  Country: GB (occurrence: GB)
  Receive Date: 20201231
  Receipt Date: 20201231
  Transmission Date: 20210114
  Serious: Yes (Disabling, Other)
  Sender: FDA-Public Use
  Company Number: GB-009507513-2012GBR012649

PATIENT
  Age: 26 Year
  Sex: Female
  Weight: 63.95 kg

DRUGS (7)
  1. OTOMIZE (ACETIC ACID (+) DEXAMETHASONE (+) NEOMYCIN SULFATE) [Suspect]
     Active Substance: ACETIC ACID\DEXAMETHASONE\NEOMYCIN SULFATE
     Indication: EAR INFECTION
     Dosage: DAILY, AS NECESSARY (EAR SPRAY)
     Dates: end: 20200604
  2. HYDROCORTISONE. [Suspect]
     Active Substance: HYDROCORTISONE
     Indication: ECZEMA
     Dosage: 1%, DAILY WHEN NEEDED (RECOMMENDATION ^USE TWICE DAILY^)
     Route: 061
     Dates: start: 20020213, end: 20200604
  3. CAUSTICUM [Concomitant]
     Active Substance: CAUSTICUM
     Dosage: UNK
  4. MOMETASONE FUROATE. [Suspect]
     Active Substance: MOMETASONE FUROATE
     Indication: ECZEMA
     Dosage: 0.1%, DAILY WHEN NEEDED (RECOMMENDATION ^USE TWICE DAILY^)
     Route: 061
     Dates: end: 20200604
  5. EUMOVATE [Suspect]
     Active Substance: CLOBETASONE BUTYRATE
     Indication: ECZEMA
     Dosage: 0.05%, DAILY WHEN NEEDED, RECOMMENDATION USE 1-2 TIMES
     Route: 061
     Dates: start: 20120304, end: 20120624
  6. HYDROCORTISONE. [Suspect]
     Active Substance: HYDROCORTISONE
     Indication: ECZEMA
     Dosage: 1%, DAILY WHEN NEEDED (RECOMMENDATION ^USE TWICE DAILY^).
     Route: 061
     Dates: start: 2019, end: 20200604
  7. BETAMETHASONE (+) FUSIDIC ACID [Suspect]
     Active Substance: BETAMETHASONE\FUSIDIC ACID
     Indication: ECZEMA
     Dosage: 0.1%, DAILY WHEN NEEDED, RECOMMENDATION ^APPLY THINLY TWICE A DAY^
     Route: 061
     Dates: start: 20150310, end: 20150422

REACTIONS (17)
  - Skin exfoliation [Recovering/Resolving]
  - Peripheral swelling [Recovered/Resolved]
  - Pruritus [Recovering/Resolving]
  - Steroid withdrawal syndrome [Recovering/Resolving]
  - Menstruation delayed [Recovered/Resolved]
  - Hyperaesthesia [Recovering/Resolving]
  - Erythema [Recovering/Resolving]
  - Skin infection [Recovering/Resolving]
  - Skin weeping [Recovering/Resolving]
  - Lymphadenopathy [Recovered/Resolved]
  - Medication error [Unknown]
  - Temperature regulation disorder [Recovering/Resolving]
  - Alopecia [Recovering/Resolving]
  - Depression suicidal [Recovering/Resolving]
  - Skin atrophy [Recovering/Resolving]
  - Lymphadenopathy [Recovering/Resolving]
  - Eye swelling [Recovering/Resolving]

NARRATIVE: CASE EVENT DATE: 20200610
